FAERS Safety Report 7991034-9 (Version None)
Quarter: 2011Q4

REPORT INFORMATION
  Report Type: 
  Country: None (occurrence: None)
  Receive Date: 20111219
  Receipt Date: 20111206
  Transmission Date: 20120403
  Serious: Yes (Other)
  Sender: FDA-Public Use
  Company Number: IT-ROCHE-1021426

PATIENT

DRUGS (1)
  1. MABTHERA [Suspect]
     Indication: CRYOGLOBULINAEMIA

REACTIONS (5)
  - VASCULITIS NECROTISING [None]
  - GANGRENE [None]
  - SERUM SICKNESS-LIKE REACTION [None]
  - NEUROPATHY PERIPHERAL [None]
  - PNEUMONIA [None]
